FAERS Safety Report 8525741-6 (Version None)
Quarter: 2012Q3

REPORT INFORMATION
  Report Type: 
  Country: None (occurrence: None)
  Receive Date: 20120720
  Receipt Date: 20120619
  Transmission Date: 20120928
  Serious: Yes (Other)
  Sender: FDA-Public Use
  Company Number: US-009507513-1204USA03840

PATIENT

DRUGS (1)
  1. JANUVIA [Suspect]
     Indication: DIABETES MELLITUS
     Dosage: 100 MG, QD
     Route: 048
     Dates: start: 20110101

REACTIONS (3)
  - AMYLASE INCREASED [None]
  - CARBOHYDRATE ANTIGEN 19-9 INCREASED [None]
  - LIPASE INCREASED [None]
